FAERS Safety Report 7358186-5 (Version None)
Quarter: 2011Q1

REPORT INFORMATION
  Report Type: 
  Country: None (occurrence: None)
  Receive Date: 20110317
  Receipt Date: 20110307
  Transmission Date: 20110831
  Serious: Yes (Death)
  Sender: FDA-Public Use
  Company Number: US-ENDO PHARMACEUTICALS INC.-OPER20110050

PATIENT
  Sex: Male

DRUGS (2)
  1. OPANA ER [Suspect]
     Indication: DRUG ABUSE
     Dosage: UNK
  2. ALCOHOL [Suspect]
     Dosage: UNK

REACTIONS (3)
  - ALCOHOL POISONING [None]
  - DRUG ABUSE [None]
  - TOXICITY TO VARIOUS AGENTS [None]
